FAERS Safety Report 10240942 (Version 2)
Quarter: 2014Q2

REPORT INFORMATION
  Report Type: Spontaneous
  Country: US (occurrence: US)
  Receive Date: 20140617
  Receipt Date: 20140617
  Transmission Date: 20141212
  Serious: Yes (Other)
  Sender: FDA-Public Use
  Company Number: US-ELI_LILLY_AND_COMPANY-US201009000289

PATIENT
  Sex: Female

DRUGS (2)
  1. HUMALOG LISPRO [Suspect]
     Indication: TYPE 2 DIABETES MELLITUS
     Dosage: 23 U, DAILY (1/D)
     Route: 065
     Dates: start: 20050830
  2. LANTUS [Concomitant]
     Dosage: 22 U, AS NEEDED

REACTIONS (2)
  - Eye haemorrhage [Unknown]
  - Visual impairment [Not Recovered/Not Resolved]
